FAERS Safety Report 4963041-1 (Version None)
Quarter: 2006Q2

REPORT INFORMATION
  Report Type: 
  Country: None (occurrence: None)
  Receive Date: 20060405
  Receipt Date: 20060324
  Transmission Date: 20061013
  Serious: Yes (Other)
  Sender: FDA-Public Use
  Company Number: AU-JNJFOC-20060306205

PATIENT
  Age: 22 Year
  Sex: Male

DRUGS (2)
  1. RISPERDAL CONSTA [Suspect]
  2. RISPERDAL CONSTA [Suspect]
     Indication: SCHIZOPHRENIA

REACTIONS (2)
  - AKATHISIA [None]
  - INCORRECT DOSE ADMINISTERED [None]
